FAERS Safety Report 5715176-3 (Version None)
Quarter: 2008Q2

REPORT INFORMATION
  Report Type: 
  Country: None (occurrence: None)
  Receive Date: 20080423
  Receipt Date: 20080402
  Transmission Date: 20081010
  Serious: Yes (Death, Other)
  Sender: FDA-Public Use
  Company Number: US-ELI_LILLY_AND_COMPANY-US200804001280

PATIENT
  Sex: Female

DRUGS (4)
  1. CYMBALTA [Suspect]
     Indication: PAIN IN EXTREMITY
     Dosage: 60 MG, UNK
     Dates: start: 20070901, end: 20071030
  2. ETODOLAC [Concomitant]
     Dosage: 400 MG, 2/D
  3. ALEVE [Concomitant]
  4. AMITRIPTYLINE HCL [Concomitant]
     Dosage: 50 MG, UNK

REACTIONS (4)
  - CAROTID ARTERIAL EMBOLUS [None]
  - CEREBROVASCULAR ACCIDENT [None]
  - DRUG INEFFECTIVE [None]
  - KNEE OPERATION [None]
